FAERS Safety Report 7137695-8 (Version None)
Quarter: 2010Q4

REPORT INFORMATION
  Report Type: 
  Country: None (occurrence: None)
  Receive Date: 20101119
  Receipt Date: 20101109
  Transmission Date: 20110411
  Serious: Yes (Hospitalization)
  Sender: FDA-Public Use
  Company Number: POMP-1000561

PATIENT
  Age: 17 Month
  Sex: Male
  Weight: 12 kg

DRUGS (7)
  1. MYOZYME [Suspect]
     Indication: GLYCOGEN STORAGE DISEASE TYPE II
     Dosage: 40 MG/KG, Q2W, INTRAVENOUS
     Route: 042
  2. RITUXIMAB [Concomitant]
  3. CYCLOPHOSPHAMIDE [Concomitant]
  4. VELCADE [Concomitant]
  5. METHOTREXATE [Concomitant]
  6. IMMUNE GLOBULIN (HUMAN) [Concomitant]
  7. SEPTRA [Concomitant]

REACTIONS (5)
  - CARDIO-RESPIRATORY ARREST [None]
  - DISEASE PROGRESSION [None]
  - PNEUMONIA [None]
  - RESPIRATORY FAILURE [None]
  - TRACHEITIS [None]
